FAERS Safety Report 8487041-2 (Version None)
Quarter: 2012Q3

REPORT INFORMATION
  Report Type: 
  Country: None (occurrence: None)
  Receive Date: 20120704
  Receipt Date: 20120627
  Transmission Date: 20120928
  Serious: Yes (Hospitalization, Other)
  Sender: FDA-Public Use
  Company Number: PHHY2012FR055980

PATIENT
  Age: 28 Year
  Sex: Female

DRUGS (3)
  1. TYSABRI [Suspect]
     Indication: MULTIPLE SCLEROSIS
     Dosage: 300 MG, QMO
     Route: 042
     Dates: start: 20080422, end: 20120122
  2. AVONEX [Suspect]
     Indication: MULTIPLE SCLEROSIS
     Dosage: UNK UKN, UNK
     Dates: start: 20050101, end: 20080401
  3. GILENYA [Suspect]
     Indication: MULTIPLE SCLEROSIS
     Dosage: 0.5 MG, QD
     Route: 048
     Dates: start: 20120416, end: 20120429

REACTIONS (10)
  - IMMUNE RECONSTITUTION SYNDROME [None]
  - QUALITY OF LIFE DECREASED [None]
  - WEIGHT DECREASED [None]
  - HEADACHE [None]
  - DIZZINESS [None]
  - CONDITION AGGRAVATED [None]
  - VOMITING [None]
  - ABNORMAL BEHAVIOUR [None]
  - NAUSEA [None]
  - DEPRESSION [None]
